FAERS Safety Report 8586358-0 (Version None)
Quarter: 2012Q3

REPORT INFORMATION
  Report Type: 
  Country: None (occurrence: None)
  Receive Date: 20120810
  Receipt Date: 20120807
  Transmission Date: 20120928
  Serious: No
  Sender: FDA-Public Use
  Company Number: US-B.I. PHARMACEUTICALS,INC./RIDGEFIELD-2011-BP-04552BP

PATIENT
  Sex: Female

DRUGS (5)
  1. TYROSINE [Concomitant]
     Indication: SUPPLEMENTATION THERAPY
     Route: 048
     Dates: start: 20120101
  2. PRADAXA [Suspect]
     Indication: ATRIAL FIBRILLATION
     Dosage: 300 MG
     Route: 048
     Dates: start: 20100101
  3. CARVEDILOL [Concomitant]
     Indication: CARDIAC DISORDER
     Dosage: 18.75 MG
     Route: 048
     Dates: start: 20110101
  4. BIOTIN [Concomitant]
     Indication: SUPPLEMENTATION THERAPY
     Dosage: 5 MG
     Route: 048
     Dates: start: 20120805
  5. RAMIPRIL [Concomitant]
     Indication: CARDIAC DISORDER
     Dosage: 2.5 MG
     Route: 048
     Dates: start: 20110101

REACTIONS (6)
  - MUCOUS MEMBRANE DISORDER [None]
  - ABDOMINAL DISTENSION [None]
  - COUGH [None]
  - THROAT TIGHTNESS [None]
  - OROPHARYNGEAL PAIN [None]
  - ABDOMINAL DISCOMFORT [None]
